FAERS Safety Report 17388979 (Version 1)
Quarter: 2020Q1

REPORT INFORMATION
  Report Type: Spontaneous
  Country: JP (occurrence: JP)
  Receive Date: 20200206
  Receipt Date: 20200206
  Transmission Date: 20200409
  Serious: Yes (Hospitalization)
  Sender: FDA-Public Use
  Company Number: JP-DSJP-DSJ-2020-104509

PATIENT

DRUGS (4)
  1. OLMETEC OD [Suspect]
     Active Substance: OLMESARTAN MEDOXOMIL
     Indication: ESSENTIAL HYPERTENSION
     Dosage: UNK
     Route: 065
  2. AMLODIPINE                         /00972402/ [Concomitant]
     Active Substance: AMLODIPINE BESYLATE
     Dosage: UNK
     Route: 065
  3. BRODALUMAB [Concomitant]
     Active Substance: BRODALUMAB
     Dosage: 210 MG
     Route: 065
     Dates: start: 201806, end: 201806
  4. BRODALUMAB [Concomitant]
     Active Substance: BRODALUMAB
     Indication: PSORIASIS
     Dosage: UNK
     Route: 065
     Dates: start: 201803, end: 201806

REACTIONS (2)
  - Cellulitis [Recovering/Resolving]
  - Pustular psoriasis [Recovered/Resolved]

NARRATIVE: CASE EVENT DATE: 201805
